FAERS Safety Report 5230790-X (Version None)
Quarter: 2007Q1

REPORT INFORMATION
  Report Type: 
  Country: None (occurrence: None)
  Receive Date: 20070202
  Receipt Date: 20070119
  Transmission Date: 20070707
  Serious: Yes (Other)
  Sender: FDA-Public Use
  Company Number: 234426

PATIENT
  Age: 22 Year
  Sex: Female

DRUGS (8)
  1. XOLAIR [Suspect]
     Indication: ASTHMA
     Dosage: 300 MG, 2 WEEK, SUBCUTANEOUS
     Route: 058
     Dates: start: 20060501, end: 20061101
  2. SERETIDE DISKUS (FLUTICASONE PROPIONATE, SALMETEROL XINAFOATE) [Concomitant]
  3. COMBIVENT [Concomitant]
  4. BERODUAL (FENOTEROL, IPRATROPIUM BROMIDE) [Concomitant]
  5. SINGULAIR [Concomitant]
  6. UNIPHYL SR (THEOPHYLLINE) [Concomitant]
  7. DESLORATADINE [Concomitant]
  8. PANTOPRAZOLE SODIUM [Concomitant]

REACTIONS (4)
  - ANAPHYLACTIC REACTION [None]
  - CONVULSION [None]
  - INJECTION SITE ERYTHEMA [None]
  - STATUS ASTHMATICUS [None]
